FAERS Safety Report 20595608 (Version 1)
Quarter: 2022Q1

REPORT INFORMATION
  Report Type: Spontaneous
  Country: US (occurrence: None)
  Receive Date: 20220314
  Receipt Date: 20220314
  Transmission Date: 20220423
  Serious: Yes (unspecified)
  Sender: FDA-Public Use
  Company Number: None

PATIENT
  Age: 22 Year
  Sex: Female
  Weight: 64.3 kg

DRUGS (1)
  1. LEVETIRACETAM [Suspect]
     Active Substance: LEVETIRACETAM
     Indication: Myoclonic epilepsy
     Dosage: FREQUENCY : DAILY;?
     Route: 048

REACTIONS (7)
  - Product substitution issue [None]
  - Personality change [None]
  - Agitation [None]
  - Anger [None]
  - Hostility [None]
  - Depressed mood [None]
  - Abnormal behaviour [None]

NARRATIVE: CASE EVENT DATE: 20191204
